FAERS Safety Report 8077937-8 (Version None)
Quarter: 2012Q1

REPORT INFORMATION
  Report Type: 
  Country: None (occurrence: None)
  Receive Date: 20120127
  Receipt Date: 20110104
  Transmission Date: 20120608
  Serious: No
  Sender: FDA-Public Use
  Company Number: US-ABBOTT-11P-163-0695356-00

PATIENT
  Age: 38 Year
  Sex: Male

DRUGS (2)
  1. AMITRIPTYLINE HCL [Concomitant]
     Indication: PRODUCT USED FOR UNKNOWN INDICATION
     Route: 048
  2. HUMIRA [Suspect]
     Indication: ANKYLOSING SPONDYLITIS
     Dates: start: 20100801

REACTIONS (5)
  - NASOPHARYNGITIS [None]
  - HEADACHE [None]
  - ANKYLOSING SPONDYLITIS [None]
  - VITAMIN D DECREASED [None]
  - FIBROMYALGIA [None]
